FAERS Safety Report 21930607 (Version 1)
Quarter: 2023Q1

REPORT INFORMATION
  Report Type: Spontaneous
  Country: US (occurrence: None)
  Receive Date: 20230130
  Receipt Date: 20230130
  Transmission Date: 20230418
  Serious: Yes (Hospitalization)
  Sender: FDA-Public Use
  Company Number: None

PATIENT
  Sex: Female

DRUGS (1)
  1. OPSUMIT [Suspect]
     Active Substance: MACITENTAN
     Indication: Pulmonary arterial hypertension
     Dosage: FREQUENCY : DAILY;?
     Route: 048
     Dates: start: 20220609, end: 20230126

REACTIONS (6)
  - Product dose omission issue [None]
  - Product use issue [None]
  - Respiration abnormal [None]
  - Dyspnoea exertional [None]
  - Spinal fracture [None]
  - Inability to afford medication [None]
